FAERS Safety Report 13442285 (Version 4)
Quarter: 2017Q3

REPORT INFORMATION
  Report Type: Spontaneous
  Country: GR (occurrence: GR)
  Receive Date: 20170413
  Receipt Date: 20170921
  Transmission Date: 20171127
  Serious: Yes (Hospitalization)
  Sender: FDA-Public Use
  Company Number: GR-CELGENEUS-GRC-20170400622

PATIENT
  Age: 19 Year
  Sex: Female

DRUGS (6)
  1. OTEZLA [Suspect]
     Active Substance: APREMILAST
     Dosage: 20 MG
     Route: 048
     Dates: start: 201612
  2. OTEZLA [Suspect]
     Active Substance: APREMILAST
     Dosage: 40 MG
     Route: 048
     Dates: start: 201612
  3. OTEZLA [Suspect]
     Active Substance: APREMILAST
     Indication: PSORIATIC ARTHROPATHY
     Dosage: 10 MG
     Route: 048
     Dates: start: 201612
  4. OTEZLA [Suspect]
     Active Substance: APREMILAST
     Dosage: 60 MG
     Route: 048
     Dates: start: 201612
  5. OTEZLA [Suspect]
     Active Substance: APREMILAST
     Dosage: 10/20 MG
     Route: 048
     Dates: start: 201612
  6. OTEZLA [Suspect]
     Active Substance: APREMILAST
     Dosage: 20/30 MG
     Route: 048
     Dates: start: 201612

REACTIONS (1)
  - Cerebrovascular accident [Recovered/Resolved with Sequelae]

NARRATIVE: CASE EVENT DATE: 20170329
